FAERS Safety Report 16439781 (Version 1)
Quarter: 2019Q3

REPORT INFORMATION
  Report Type: Spontaneous
  Country: US (occurrence: US)
  Receive Date: 20190614
  Receipt Date: 20190614
  Transmission Date: 20191004
  Serious: Yes (Disabling)
  Sender: FDA-Public Use
  Company Number: None

PATIENT
  Age: 76 Year
  Sex: Female
  Weight: 55.8 kg

DRUGS (4)
  1. RECLAST [Suspect]
     Active Substance: ZOLEDRONIC ACID
     Indication: OSTEOPOROSIS
     Route: 042
     Dates: start: 20190509, end: 20190509
  2. RESTASIS EYEDROP [Concomitant]
  3. LISINOPRIL. [Concomitant]
     Active Substance: LISINOPRIL
  4. BUSPIRONE [Concomitant]
     Active Substance: BUSPIRONE HYDROCHLORIDE

REACTIONS (13)
  - Decreased appetite [None]
  - Fatigue [None]
  - Nausea [None]
  - Mood altered [None]
  - Balance disorder [None]
  - Asthenia [None]
  - Pyrexia [None]
  - Flushing [None]
  - Chills [None]
  - Somnolence [None]
  - Food aversion [None]
  - Back pain [None]
  - Cognitive disorder [None]

NARRATIVE: CASE EVENT DATE: 20190509
